FAERS Safety Report 10017674 (Version 1)
Quarter: 2014Q1

REPORT INFORMATION
  Report Type: Spontaneous
  Country: US (occurrence: None)
  Receive Date: 20140312
  Receipt Date: 20140312
  Transmission Date: 20141002
  Serious: Yes (Hospitalization, Other)
  Sender: FDA-Public Use
  Company Number: UTC-043309

PATIENT
  Age: 65 Year
  Sex: Male
  Weight: 70 kg

DRUGS (3)
  1. REMODULIN [Suspect]
     Indication: COR PULMONALE CHRONIC
     Dosage: 54.72 UG/KG (0.038 UG/KG, 1 IN 1 MIN), INTRAVENOUS DRIP
     Route: 041
     Dates: start: 20130619
  2. ADCIRCA [Suspect]
     Indication: PRODUCT USED FOR UNKNOWN INDICATION
  3. TRACLEER (BOSENTAN) (UNKNOWN) [Concomitant]

REACTIONS (10)
  - Right ventricular failure [None]
  - Drug ineffective [None]
  - Clostridium difficile colitis [None]
  - Gastric infection [None]
  - Staphylococcal infection [None]
  - Headache [None]
  - Pain in jaw [None]
  - Musculoskeletal pain [None]
  - Diarrhoea [None]
  - Bacterial infection [None]
